FAERS Safety Report 24572407 (Version 2)
Quarter: 2025Q3

REPORT INFORMATION
  Report Type: Spontaneous
  Country: CN (occurrence: CN)
  Receive Date: 20241101
  Receipt Date: 20250803
  Transmission Date: 20251021
  Serious: Yes (Other)
  Sender: ALEXION PHARMACEUTICALS
  Company Number: CN-ASTRAZENECA-202410CHN006735CN

PATIENT
  Age: 56 Year
  Sex: Female
  Weight: 41.7 kg

DRUGS (1)
  1. DAPAGLIFLOZIN [Suspect]
     Active Substance: DAPAGLIFLOZIN
     Indication: Blood glucose abnormal
     Dosage: 10 MILLIGRAM, QD
     Dates: start: 20240813, end: 20240920

REACTIONS (2)
  - Diabetic ketoacidosis [Recovering/Resolving]
  - Diabetes mellitus inadequate control [Unknown]

NARRATIVE: CASE EVENT DATE: 20240920
